FAERS Safety Report 14714806 (Version 1)
Quarter: 2018Q2

REPORT INFORMATION
  Report Type: Spontaneous
  Country: US (occurrence: US)
  Receive Date: 20180404
  Receipt Date: 20180404
  Transmission Date: 20180711
  Serious: Yes (Other)
  Sender: FDA-Public Use
  Company Number: US-GLAXOSMITHKLINE-US2018055963

PATIENT
  Sex: Male

DRUGS (14)
  1. ELMIRON [Concomitant]
     Active Substance: PENTOSAN POLYSULFATE SODIUM
  2. PANTOPRAZOLE [Concomitant]
     Active Substance: PANTOPRAZOLE
  3. ATROVENT [Concomitant]
     Active Substance: IPRATROPIUM BROMIDE
  4. RESTASIS [Concomitant]
     Active Substance: CYCLOSPORINE
  5. LATANOPROST. [Concomitant]
     Active Substance: LATANOPROST
  6. METFORMIN [Concomitant]
     Active Substance: METFORMIN HYDROCHLORIDE
  7. DOXYCYCLINE. [Concomitant]
     Active Substance: DOXYCYCLINE
  8. ATORVASTATIN [Concomitant]
     Active Substance: ATORVASTATIN
  9. SEREVENT DISKUS [Suspect]
     Active Substance: SALMETEROL XINAFOATE
     Indication: CHRONIC OBSTRUCTIVE PULMONARY DISEASE
     Dosage: 1 PUFF(S), BID
     Route: 055
     Dates: start: 201803, end: 20180331
  10. ASMANEX [Concomitant]
     Active Substance: MOMETASONE FUROATE
  11. CELEBREX [Concomitant]
     Active Substance: CELECOXIB
  12. ANORO ELLIPTA [Suspect]
     Active Substance: UMECLIDINIUM BROMIDE\VILANTEROL TRIFENATATE
     Indication: CHRONIC OBSTRUCTIVE PULMONARY DISEASE
     Dosage: 1 PUFF(S), QD
     Route: 055
     Dates: start: 2013
  13. AZOPT [Concomitant]
     Active Substance: BRINZOLAMIDE
  14. MONTELUKAST [Concomitant]
     Active Substance: MONTELUKAST SODIUM

REACTIONS (8)
  - Drug ineffective [Unknown]
  - Eye operation [Unknown]
  - Open angle glaucoma [Unknown]
  - Dyspnoea [Unknown]
  - Pollakiuria [Unknown]
  - Condition aggravated [Unknown]
  - Ocular hyperaemia [Unknown]
  - Dysuria [Unknown]
